FAERS Safety Report 10008238 (Version 2)
Quarter: 2014Q1

REPORT INFORMATION
  Report Type: Spontaneous
  Country: US (occurrence: US)
  Receive Date: 20140313
  Receipt Date: 20140313
  Transmission Date: 20141002
  Serious: No
  Sender: FDA-Public Use
  Company Number: US-GILEAD-2013-0071332

PATIENT
  Sex: Female

DRUGS (2)
  1. LETAIRIS [Suspect]
     Indication: PRODUCT USED FOR UNKNOWN INDICATION
     Dosage: 5 MG, QD
     Dates: start: 20110314
  2. VENTAVIS [Concomitant]

REACTIONS (4)
  - Facial pain [Unknown]
  - Bone pain [Unknown]
  - Back pain [Unknown]
  - Headache [Unknown]
